FAERS Safety Report 13383803 (Version 1)
Quarter: 2017Q1

REPORT INFORMATION
  Report Type: Spontaneous
  Country: US (occurrence: US)
  Receive Date: 20170329
  Receipt Date: 20170329
  Transmission Date: 20170429
  Serious: No
  Sender: FDA-Public Use
  Company Number: US-DLSS-2017AYT000022

PATIENT
  Age: 46 Year
  Sex: Male

DRUGS (2)
  1. NASACORT [Concomitant]
     Active Substance: TRIAMCINOLONE ACETONIDE
     Dosage: UNK
  2. NATESTO [Suspect]
     Active Substance: TESTOSTERONE
     Indication: PRODUCT USED FOR UNKNOWN INDICATION
     Dosage: 1 DF, QD (2 PUMP ACTUATIONS (1 PER NOSTRIL) ONE DOSE ON 08 FEB 2017 AND 09 FEB 2017
     Route: 045
     Dates: start: 20170208

REACTIONS (2)
  - Retching [Recovered/Resolved]
  - Accidental exposure to product [None]

NARRATIVE: CASE EVENT DATE: 20170209
